FAERS Safety Report 5142521-2 (Version None)
Quarter: 2006Q4

REPORT INFORMATION
  Report Type: 
  Country: None (occurrence: None)
  Receive Date: 20061102
  Receipt Date: 20061023
  Transmission Date: 20070319
  Serious: Yes (Death, Hospitalization)
  Sender: FDA-Public Use
  Company Number: US-ELI_LILLY_AND_COMPANY-US200610004217

PATIENT
  Age: 79 Year
  Sex: Female

DRUGS (1)
  1. FORTEO [Suspect]
     Indication: OSTEOPOROSIS
     Dosage: UNK, UNK
     Dates: start: 20060101, end: 20060201

REACTIONS (7)
  - CARDIAC DISORDER [None]
  - CONSTIPATION [None]
  - INTESTINAL OBSTRUCTION [None]
  - PERFORATED ULCER [None]
  - PROCEDURAL COMPLICATION [None]
  - SPINAL DISORDER [None]
  - ULCER [None]
